FAERS Safety Report 15144823 (Version 1)
Quarter: 2018Q3

REPORT INFORMATION
  Report Type: Spontaneous
  Country: FR (occurrence: FR)
  Receive Date: 20180713
  Receipt Date: 20180713
  Transmission Date: 20181010
  Serious: Yes (Hospitalization)
  Sender: FDA-Public Use
  Company Number: PHHY2018FR037207

PATIENT
  Age: 77 Year
  Sex: Male

DRUGS (5)
  1. TOBRADEX [Suspect]
     Active Substance: DEXAMETHASONE\TOBRAMYCIN
     Indication: PRODUCT USED FOR UNKNOWN INDICATION
     Route: 047
  2. NIFLUGEL [Suspect]
     Active Substance: NIFLUMIC ACID
     Indication: PRODUCT USED FOR UNKNOWN INDICATION
     Route: 061
  3. ISOPTINE [Suspect]
     Active Substance: VERAPAMIL HYDROCHLORIDE
     Indication: PRODUCT USED FOR UNKNOWN INDICATION
     Route: 048
  4. STER?DEX [Suspect]
     Active Substance: DEXAMETHASONE\OXYTETRACYCLINE
     Indication: PRODUCT USED FOR UNKNOWN INDICATION
     Route: 061
  5. XARELTO [Suspect]
     Active Substance: RIVAROXABAN
     Indication: PRODUCT USED FOR UNKNOWN INDICATION
     Dosage: 1 DF, IN MORNING
     Route: 048
     Dates: start: 20180129, end: 20180315

REACTIONS (2)
  - Condition aggravated [Recovering/Resolving]
  - Ocular myasthenia [Recovering/Resolving]

NARRATIVE: CASE EVENT DATE: 201802
